FAERS Safety Report 10189460 (Version 3)
Quarter: 2014Q2

REPORT INFORMATION
  Report Type: Spontaneous
  Country: US (occurrence: US)
  Receive Date: 20140522
  Receipt Date: 20140627
  Transmission Date: 20141212
  Serious: Yes (Other)
  Sender: FDA-Public Use
  Company Number: US-PFIZER INC-2014139193

PATIENT
  Age: 82 Year
  Sex: Male
  Weight: 70.3 kg

DRUGS (1)
  1. ARTHROTEC [Suspect]
     Indication: ARTHRITIS
     Dosage: 1 DF (200 UG/75 MG), 2X/DAY

REACTIONS (1)
  - Tooth disorder [Unknown]
